FAERS Safety Report 15330497 (Version 1)
Quarter: 2018Q3

REPORT INFORMATION
  Report Type: Report from Study
  Country: US (occurrence: US)
  Receive Date: 20180829
  Receipt Date: 20180829
  Transmission Date: 20181010
  Serious: Yes (Other)
  Sender: FDA-Public Use
  Company Number: US-SA-2018SA161713

PATIENT
  Age: 58 Year
  Sex: Male

DRUGS (1)
  1. INSULIN GLARGINE/LIXISENATIDE [Suspect]
     Active Substance: INSULIN GLARGINE\LIXISENATIDE
     Indication: TYPE 2 DIABETES MELLITUS
     Dosage: 35 U
     Dates: start: 20180526

REACTIONS (5)
  - Inappropriate schedule of drug administration [Unknown]
  - Loss of consciousness [Recovered/Resolved]
  - Influenza like illness [Unknown]
  - Blood glucose decreased [Recovered/Resolved]
  - Pharyngitis streptococcal [Unknown]

NARRATIVE: CASE EVENT DATE: 20180530
